FAERS Safety Report 21812846 (Version 2)
Quarter: 2023Q1

REPORT INFORMATION
  Report Type: Report from Study
  Country: US (occurrence: US)
  Receive Date: 20230103
  Receipt Date: 20230103
  Transmission Date: 20230417
  Serious: No
  Sender: FDA-Public Use
  Company Number: US-ABBVIE-4199237

PATIENT
  Sex: Female

DRUGS (2)
  1. HUMIRA [Suspect]
     Active Substance: ADALIMUMAB
     Indication: Rheumatoid arthritis
     Dosage: 40MG/0.4ML CITRATE FREE
     Route: 058
  2. Moderna [Concomitant]
     Indication: COVID-19 immunisation
     Route: 030

REACTIONS (1)
  - Maternal exposure during pregnancy [Unknown]
